FAERS Safety Report 9363129 (Version 1)
Quarter: 2013Q2

REPORT INFORMATION
  Report Type: Spontaneous
  Country: US (occurrence: US)
  Receive Date: 20130624
  Receipt Date: 20130624
  Transmission Date: 20140414
  Serious: Yes (Hospitalization)
  Sender: FDA-Public Use
  Company Number: US-BIOGENIDEC-2013BI054865

PATIENT
  Age: 51 Year
  Sex: Female

DRUGS (3)
  1. AVONEX [Suspect]
     Indication: MULTIPLE SCLEROSIS
     Route: 030
     Dates: start: 20101231, end: 20130410
  2. PROTONIX [Concomitant]
     Indication: PROPHYLAXIS
  3. SUCRALFATE [Concomitant]
     Indication: PROPHYLAXIS

REACTIONS (4)
  - Dyspepsia [Unknown]
  - Pulmonary oedema [Recovered/Resolved]
  - Gait disturbance [Not Recovered/Not Resolved]
  - Gastrointestinal hypomotility [Not Recovered/Not Resolved]
